FAERS Safety Report 18439921 (Version 1)
Quarter: 2020Q4

REPORT INFORMATION
  Report Type: Spontaneous
  Country: GB (occurrence: GB)
  Receive Date: 20201029
  Receipt Date: 20201029
  Transmission Date: 20210114
  Serious: Yes (Other)
  Sender: FDA-Public Use
  Company Number: GB-TEVA-2020-GB-1841730

PATIENT
  Sex: Female

DRUGS (1)
  1. METOCLOPRAMIDE. [Suspect]
     Active Substance: METOCLOPRAMIDE
     Route: 065

REACTIONS (8)
  - Somnolence [Unknown]
  - Dry mouth [Unknown]
  - Dry eye [Unknown]
  - Vomiting [Unknown]
  - Hunger [Unknown]
  - Ageusia [Unknown]
  - Fatigue [Unknown]
  - Constipation [Unknown]
